FAERS Safety Report 9976001 (Version 4)
Quarter: 2014Q2

REPORT INFORMATION
  Report Type: Spontaneous
  Country: US (occurrence: US)
  Receive Date: 20140306
  Receipt Date: 20140613
  Transmission Date: 20141212
  Serious: No
  Sender: FDA-Public Use
  Company Number: US-PFIZER INC-2014063459

PATIENT
  Age: 66 Year
  Sex: Female
  Weight: 62.59 kg

DRUGS (2)
  1. PRISTIQ [Suspect]
     Indication: DEPRESSION
     Dosage: 50 MG, DAILY
     Dates: start: 2013
  2. SYNTHROID [Concomitant]
     Indication: THYROID DISORDER
     Dosage: 112 UG, DAILY

REACTIONS (3)
  - Back disorder [Not Recovered/Not Resolved]
  - Dysgeusia [Unknown]
  - Paranasal sinus discomfort [Unknown]
